FAERS Safety Report 15151306 (Version 1)
Quarter: 2018Q3

REPORT INFORMATION
  Report Type: Spontaneous
  Country: US (occurrence: US)
  Receive Date: 20180716
  Receipt Date: 20180716
  Transmission Date: 20181010
  Serious: No
  Sender: FDA-Public Use
  Company Number: US-SHIRE-US201825925

PATIENT
  Sex: Female
  Weight: 54.42 kg

DRUGS (2)
  1. XIIDRA [Suspect]
     Active Substance: LIFITEGRAST
     Indication: DRY EYE
     Dosage: 1 GTT, 2X/DAY:BID
     Route: 047
     Dates: start: 201706, end: 201806
  2. FISH OIL [Concomitant]
     Active Substance: FISH OIL
     Indication: PRODUCT USED FOR UNKNOWN INDICATION

REACTIONS (10)
  - Visual acuity reduced [Unknown]
  - Product quality issue [Unknown]
  - Instillation site reaction [Unknown]
  - Instillation site dryness [Unknown]
  - Vision blurred [Unknown]
  - Product storage error [Unknown]
  - Trichorrhexis [Unknown]
  - Halo vision [Unknown]
  - Instillation site erythema [Not Recovered/Not Resolved]
  - Conjunctivitis [Unknown]
